FAERS Safety Report 8241443-8 (Version None)
Quarter: 2012Q1

REPORT INFORMATION
  Report Type: 
  Country: None (occurrence: None)
  Receive Date: 20120328
  Receipt Date: 20120319
  Transmission Date: 20120608
  Serious: Yes (Hospitalization)
  Sender: FDA-Public Use
  Company Number: US-NAPPMUNDI-USA-2011-0078588

PATIENT
  Sex: Female
  Weight: 67 kg

DRUGS (1)
  1. OXYCODONE HCL [Suspect]
     Indication: PAIN
     Dosage: 20 MG, BID
     Route: 048
     Dates: start: 20111120, end: 20111122

REACTIONS (7)
  - DIPLOPIA [None]
  - VOMITING [None]
  - VERTIGO [None]
  - LETHARGY [None]
  - HEADACHE [None]
  - BALANCE DISORDER [None]
  - DIZZINESS [None]
